FAERS Safety Report 5853474-3 (Version None)
Quarter: 2008Q3

REPORT INFORMATION
  Report Type: 
  Country: None (occurrence: None)
  Receive Date: 20080815
  Receipt Date: 20080805
  Transmission Date: 20090109
  Serious: Yes (Death)
  Sender: FDA-Public Use
  Company Number: 200813946

PATIENT
  Age: 59 Year
  Sex: Male
  Weight: 88 kg

DRUGS (3)
  1. SANDOGLOBULIN [Suspect]
     Indication: DERMATOMYOSITIS
     Dosage: IV; 12 G ONCE, IV; 6 G ONCE, IV;
     Route: 042
     Dates: start: 20080120, end: 20080120
  2. SANDOGLOBULIN [Suspect]
     Indication: DERMATOMYOSITIS
     Dosage: IV; 12 G ONCE, IV; 6 G ONCE, IV;
     Route: 042
     Dates: start: 20080120, end: 20080121
  3. SANDOGLOBULIN [Suspect]
     Indication: DERMATOMYOSITIS
     Dosage: IV; 12 G ONCE, IV; 6 G ONCE, IV;
     Route: 042
     Dates: start: 20080121, end: 20080121

REACTIONS (25)
  - ACUTE HEPATIC FAILURE [None]
  - BLOOD BILIRUBIN INCREASED [None]
  - BLOOD LACTATE DEHYDROGENASE INCREASED [None]
  - CHOLESTASIS [None]
  - COAGULATION FACTOR V LEVEL DECREASED [None]
  - COAGULOPATHY [None]
  - HEPATIC CONGESTION [None]
  - HEPATIC FIBROSIS [None]
  - HEPATIC NECROSIS [None]
  - HEPATIC STEATOSIS [None]
  - HEPATITIS [None]
  - HEPATITIS ACUTE [None]
  - HERPES SIMPLEX [None]
  - HYPOKALAEMIA [None]
  - ILL-DEFINED DISORDER [None]
  - INTERNATIONAL NORMALISED RATIO DECREASED [None]
  - LIVER DISORDER [None]
  - MULTI-ORGAN FAILURE [None]
  - NO THERAPEUTIC RESPONSE [None]
  - PAIN [None]
  - PROTHROMBIN TIME PROLONGED [None]
  - REFUSAL OF TREATMENT BY RELATIVE [None]
  - THROMBOSIS [None]
  - TRANSAMINASES INCREASED [None]
  - ULTRASOUND LIVER ABNORMAL [None]
